FAERS Safety Report 12411971 (Version 2)
Quarter: 2016Q2

REPORT INFORMATION
  Report Type: Spontaneous
  Country: US (occurrence: US)
  Receive Date: 20160527
  Receipt Date: 20160610
  Transmission Date: 20160815
  Serious: No
  Sender: FDA-Public Use
  Company Number: US-009507513-1605USA008816

PATIENT
  Age: 22 Year
  Sex: Female
  Weight: 54.42 kg

DRUGS (1)
  1. IMPLANON [Suspect]
     Active Substance: ETONOGESTREL
     Indication: MENSTRUATION IRREGULAR
     Dosage: 1 ROD/ 3 YEARS
     Route: 059
     Dates: start: 20150814

REACTIONS (2)
  - Product use issue [Unknown]
  - Dizziness [Unknown]

NARRATIVE: CASE EVENT DATE: 20150814
